FAERS Safety Report 10375513 (Version 2)
Quarter: 2014Q3

REPORT INFORMATION
  Report Type: Spontaneous
  Country: US (occurrence: US)
  Receive Date: 20140811
  Receipt Date: 20140811
  Transmission Date: 20150326
  Serious: Yes (Hospitalization)
  Sender: FDA-Public Use
  Company Number: US-MERZ NORTH AMERICA, INC.-14MRZ-00286

PATIENT
  Sex: Female

DRUGS (3)
  1. XEOMIN [Suspect]
     Active Substance: INCOBOTULINUMTOXINA
     Indication: SKIN WRINKLING
  2. XEOMIN [Suspect]
     Active Substance: INCOBOTULINUMTOXINA
     Indication: SKIN WRINKLING
     Dosage: FOREHEAD
     Dates: start: 20140527
  3. XEOMIN [Suspect]
     Active Substance: INCOBOTULINUMTOXINA
     Indication: FACE LIFT
     Dosage: GLABELLAR AND CROW^S FEET
     Route: 030

REACTIONS (24)
  - Fatigue [None]
  - Ocular discomfort [None]
  - Dyspnoea [None]
  - Faecal incontinence [None]
  - Lacrimation increased [None]
  - Bladder disorder [None]
  - Asthma [None]
  - Head discomfort [None]
  - Muscle spasms [None]
  - Pain in extremity [None]
  - Urinary incontinence [None]
  - Muscular weakness [None]
  - Atrophy [None]
  - Chest discomfort [None]
  - Dysphagia [None]
  - Diarrhoea [None]
  - Chest pain [None]
  - Malaise [None]
  - Eye irritation [None]
  - Gingival pain [None]
  - Burning sensation [None]
  - Hypoaesthesia [None]
  - Wheelchair user [None]
  - Superficial injury of eye [None]
